FAERS Safety Report 16929432 (Version 1)
Quarter: 2019Q4

REPORT INFORMATION
  Report Type: Spontaneous
  Country: US (occurrence: US)
  Receive Date: 20191016
  Receipt Date: 20191016
  Transmission Date: 20200122
  Serious: No
  Sender: FDA-Public Use
  Company Number: None

PATIENT
  Age: 43 Year
  Sex: Female
  Weight: 67.05 kg

DRUGS (1)
  1. NP THYROID [Suspect]
     Active Substance: LEVOTHYROXINE\LIOTHYRONINE
     Indication: HYPOTHYROIDISM
     Route: 048
     Dates: start: 20190920, end: 20190926

REACTIONS (5)
  - Tongue discomfort [None]
  - Product contamination [None]
  - Product odour abnormal [None]
  - Product formulation issue [None]
  - Dyspepsia [None]

NARRATIVE: CASE EVENT DATE: 20190925
